FAERS Safety Report 4791274-6 (Version None)
Quarter: 2005Q4

REPORT INFORMATION
  Report Type: 
  Country: None (occurrence: None)
  Receive Date: 20051005
  Receipt Date: 20050926
  Transmission Date: 20060501
  Serious: Yes (Hospitalization)
  Sender: FDA-Public Use
  Company Number: GXKR2005GB01699

PATIENT
  Age: 55 Year
  Sex: Male

DRUGS (5)
  1. ATENOLOL [Suspect]
  2. ATORVASTATIN CALCIUM [Concomitant]
  3. DIHYDROCODEINE (DIHYDROCODEINE) [Concomitant]
  4. DICLOFENAC (DICLOFENAC) [Concomitant]
  5. AMITRIPTYLINE HCL [Concomitant]

REACTIONS (5)
  - FALL [None]
  - OVERDOSE [None]
  - RENAL FAILURE ACUTE [None]
  - RHABDOMYOLYSIS [None]
  - SYNCOPE [None]
